FAERS Safety Report 16367511 (Version 1)
Quarter: 2019Q2

REPORT INFORMATION
  Report Type: Spontaneous
  Country: US (occurrence: US)
  Receive Date: 20190529
  Receipt Date: 20190529
  Transmission Date: 20190711
  Serious: No
  Sender: FDA-Public Use
  Company Number: US-OTSUKA-2018_039807

PATIENT
  Age: 89 Year
  Sex: Female

DRUGS (1)
  1. SAMSCA [Suspect]
     Active Substance: TOLVAPTAN
     Indication: PRODUCT USED FOR UNKNOWN INDICATION
     Dosage: UNK, QD (FOR 30 DAYS)
     Route: 065
     Dates: start: 20181026

REACTIONS (2)
  - Blood sodium decreased [Unknown]
  - Product supply issue [Unknown]

NARRATIVE: CASE EVENT DATE: 20181217
